FAERS Safety Report 6377590-5 (Version None)
Quarter: 2009Q3

REPORT INFORMATION
  Report Type: 
  Country: None (occurrence: None)
  Receive Date: 20090923
  Receipt Date: 20090923
  Transmission Date: 20100115
  Serious: No
  Sender: FDA-Public Use
  Company Number: None

PATIENT
  Age: 64 Year
  Sex: Male
  Weight: 60 kg

DRUGS (13)
  1. INSULIN ASPART [Suspect]
     Indication: TYPE 2 DIABETES MELLITUS
     Dosage: 15 UNITS SQ TID
     Dates: start: 20090809, end: 20090810
  2. INSULIN GLARGINE [Suspect]
     Indication: TYPE 2 DIABETES MELLITUS
     Dosage: 10 UNITS SQ QHS
  3. ALLOPURINOL [Concomitant]
  4. BRIMONIDINE [Concomitant]
  5. TIMOLOL [Concomitant]
  6. TRAVATAN [Concomitant]
  7. DOCUSATE [Concomitant]
  8. SENNA [Concomitant]
  9. FLUCONAZOLE [Concomitant]
  10. ACYCLOVIR [Concomitant]
  11. FUROSEMIDE [Concomitant]
  12. CEFEPIME [Concomitant]
  13. BACTRIM [Concomitant]

REACTIONS (4)
  - BLOOD GLUCOSE DECREASED [None]
  - BLOOD GLUCOSE INCREASED [None]
  - BODY TEMPERATURE DECREASED [None]
  - HYPERHIDROSIS [None]
